FAERS Safety Report 4896490-0 (Version None)
Quarter: 2006Q1

REPORT INFORMATION
  Report Type: 
  Country: None (occurrence: None)
  Receive Date: 20060131
  Receipt Date: 20060124
  Transmission Date: 20060701
  Serious: Yes (Hospitalization)
  Sender: FDA-Public Use
  Company Number: US-GLAXOSMITHKLINE-A0590734A

PATIENT
  Age: 55 Year
  Sex: Female

DRUGS (5)
  1. WELLBUTRIN [Suspect]
     Indication: DEPRESSION
     Dosage: 150MG PER DAY
     Route: 048
     Dates: start: 20051001
  2. UNSPECIFIED MEDICATION [Suspect]
  3. KLONOPIN [Concomitant]
  4. GLUCOPHAGE [Concomitant]
  5. INSULIN [Concomitant]

REACTIONS (3)
  - DYSPNOEA [None]
  - FATIGUE [None]
  - STENT OCCLUSION [None]
